FAERS Safety Report 11934011 (Version 1)
Quarter: 2016Q1

REPORT INFORMATION
  Report Type: Spontaneous
  Country: JP (occurrence: JP)
  Receive Date: 20160121
  Receipt Date: 20160121
  Transmission Date: 20160526
  Serious: No
  Sender: FDA-Public Use
  Company Number: PHJP2016JP001199

PATIENT

DRUGS (1)
  1. LAMISIL TAB [Suspect]
     Active Substance: TERBINAFINE HYDROCHLORIDE
     Indication: CANDIDA INFECTION
     Dosage: UNK
     Route: 065

REACTIONS (2)
  - Incorrect route of drug administration [Unknown]
  - Off label use [Unknown]
